FAERS Safety Report 24623189 (Version 2)
Quarter: 2025Q3

REPORT INFORMATION
  Report Type: Spontaneous
  Country: CN (occurrence: CN)
  Receive Date: 20241115
  Receipt Date: 20250803
  Transmission Date: 20251020
  Serious: Yes (Hospitalization)
  Sender: ALEXION PHARMACEUTICALS
  Company Number: CN-ASTRAZENECA-202411CHN004930CN

PATIENT
  Age: 72 Year
  Sex: Male

DRUGS (1)
  1. TICAGRELOR [Suspect]
     Active Substance: TICAGRELOR
     Indication: Antiplatelet therapy
     Dosage: 90 MILLIGRAM, BID
     Dates: start: 20241019, end: 20241019

REACTIONS (2)
  - Tachypnoea [Recovered/Resolved]
  - Breath holding [Recovered/Resolved]

NARRATIVE: CASE EVENT DATE: 20241020
